FAERS Safety Report 11113543 (Version 5)
Quarter: 2015Q4

REPORT INFORMATION
  Report Type: Spontaneous
  Country: US (occurrence: US)
  Receive Date: 20150514
  Receipt Date: 20151013
  Transmission Date: 20160304
  Serious: No
  Sender: FDA-Public Use
  Company Number: US-PFIZER INC-2015158315

PATIENT
  Age: 35 Year
  Sex: Female

DRUGS (2)
  1. LYRICA [Suspect]
     Active Substance: PREGABALIN
     Indication: DIABETIC NEUROPATHY
  2. LYRICA [Suspect]
     Active Substance: PREGABALIN
     Indication: NEUROPATHY PERIPHERAL
     Dosage: 150 MG, 3X/DAY

REACTIONS (7)
  - Gait disturbance [Recovering/Resolving]
  - Insomnia [Recovering/Resolving]
  - Activities of daily living impaired [Recovering/Resolving]
  - Polycystic ovaries [Unknown]
  - Alopecia [Unknown]
  - Hypertrichosis [Unknown]
  - Reproductive tract disorder [Unknown]
